FAERS Safety Report 5679675-5 (Version None)
Quarter: 2008Q1

REPORT INFORMATION
  Report Type: 
  Country: None (occurrence: None)
  Receive Date: 20080324
  Receipt Date: 20080307
  Transmission Date: 20080703
  Serious: Yes (Hospitalization)
  Sender: FDA-Public Use
  Company Number: 2008BM000033

PATIENT
  Age: 40 Year
  Sex: Female
  Weight: 57.6068 kg

DRUGS (11)
  1. 6R-BH4 (SAPROPTERIN DIHYDROCHLORIDE) TABLET, 100MG [Suspect]
     Indication: SICKLE CELL ANAEMIA
     Dosage: 10 MG/KG; QD; PO
     Route: 048
     Dates: start: 20071116, end: 20080212
  2. LEVAQUIN [Concomitant]
  3. ZOSYN [Concomitant]
  4. PREVACID [Concomitant]
  5. HYDROMORPHONE HYDROCHLORIDE [Concomitant]
  6. DIPHENHYDRAMINE HYDROCHLORIDE [Concomitant]
  7. FOLIC ACID [Concomitant]
  8. PERCOCET [Concomitant]
  9. OXYCODONE HCL [Concomitant]
  10. TYLENOL (CAPLET) [Concomitant]
  11. TYLENOL COLD /00020001/ [Concomitant]

REACTIONS (4)
  - PAIN IN EXTREMITY [None]
  - REFUSAL OF TREATMENT BY PATIENT [None]
  - SICKLE CELL ANAEMIA WITH CRISIS [None]
  - VENOOCCLUSIVE DISEASE [None]
